FAERS Safety Report 25648519 (Version 4)
Quarter: 2025Q4

REPORT INFORMATION
  Report Type: Report from Study
  Country: EU (occurrence: EU)
  Receive Date: 20250806
  Receipt Date: 20251119
  Transmission Date: 20260118
  Serious: Yes (Life-Threatening, Other)
  Sender: STEMLINE THERAPEUTICS
  Company Number: EU-STEMLINE THERAPEUTICS, INC-2025-STML-IT002423

PATIENT

DRUGS (26)
  1. ELZONRIS [Suspect]
     Active Substance: TAGRAXOFUSP-ERZS
     Indication: Blastic plasmacytoid dendritic cell neoplasia
     Dosage: 0.96 MG, DAILY
     Route: 042
     Dates: start: 20250709, end: 20250711
  2. ELZONRIS [Suspect]
     Active Substance: TAGRAXOFUSP-ERZS
     Dosage: 0.96 MG, DAILY
     Route: 042
     Dates: start: 20250715, end: 20250716
  3. ELZONRIS [Suspect]
     Active Substance: TAGRAXOFUSP-ERZS
     Dosage: 1 MG, DAILY
     Route: 042
     Dates: start: 20250929, end: 20251003
  4. ACYCLOVIR [Concomitant]
     Active Substance: ACYCLOVIR
     Indication: Prophylaxis
     Dosage: 400 MG, BID
     Route: 048
     Dates: start: 20250704, end: 20250727
  5. ACYCLOVIR [Concomitant]
     Active Substance: ACYCLOVIR
     Dosage: 400 MG, BID
     Route: 048
     Dates: start: 20250802
  6. SULFAMETHOXAZOLE\TRIMETHOPRIM [Concomitant]
     Active Substance: SULFAMETHOXAZOLE\TRIMETHOPRIM
     Indication: Antifungal prophylaxis
     Dosage: UNK (MON-WED-FRI)
     Route: 048
     Dates: start: 20250704
  7. FLUCONAZOLE [Concomitant]
     Active Substance: FLUCONAZOLE
     Indication: Prophylaxis
     Dosage: 200 MG, BID
     Route: 048
     Dates: start: 20250704
  8. RASBURICASE [Concomitant]
     Active Substance: RASBURICASE
     Indication: Prophylaxis
     Dosage: 15 MG, DAILY
     Route: 042
     Dates: start: 20250704, end: 20250711
  9. POLYETHYLENE GLYCOLS [Concomitant]
     Active Substance: POLYETHYLENE GLYCOLS
     Indication: Constipation
     Dosage: UNK (02 SACHET) DAILY
     Route: 048
     Dates: start: 20250708
  10. LACTULOSE [Concomitant]
     Active Substance: LACTULOSE
     Indication: Constipation
     Dosage: UNK, DAILY
     Route: 048
     Dates: start: 20250707, end: 20250712
  11. ALGELDRATE\MAGNESIUM HYDROXIDE [Concomitant]
     Active Substance: ALGELDRATE\MAGNESIUM HYDROXIDE
     Indication: Gastrooesophageal reflux disease
     Dosage: UNK (200 ML 6.9%) BID
     Route: 048
     Dates: start: 20250707
  12. PANTOPRAZOLE [Concomitant]
     Active Substance: PANTOPRAZOLE
     Indication: Gastrooesophageal reflux disease
     Dosage: 20 MG, DAILY
     Route: 048
     Dates: start: 20250707
  13. DEXAMETHASONE [Concomitant]
     Active Substance: DEXAMETHASONE
     Indication: Cytoreductive surgery
     Dosage: 8 MG, BID
     Route: 042
     Dates: start: 20250702, end: 20250709
  14. PERINDOPRIL [Concomitant]
     Active Substance: PERINDOPRIL
     Indication: Hypertension
     Dosage: 5 MG, DAILY
     Route: 048
  15. BISOPROLOL [Concomitant]
     Active Substance: BISOPROLOL
     Indication: Hypertension
     Dosage: 5 MG, DAILY
     Route: 048
  16. TALOFEN [Concomitant]
     Active Substance: PROMAZINE HYDROCHLORIDE
     Indication: Hiccups
     Dosage: 30 ML 4G/100ML (15 DROPS ONCE)
     Route: 048
     Dates: start: 20250712, end: 20250712
  17. MEROPENEM [Concomitant]
     Active Substance: MEROPENEM
     Indication: Acinetobacter infection
     Dosage: 1 G, TID
     Route: 042
     Dates: start: 20250714, end: 20250721
  18. MEROPENEM [Concomitant]
     Active Substance: MEROPENEM
     Indication: Pyrexia
     Dosage: 1 G, TID
     Route: 042
     Dates: start: 20250727, end: 20250730
  19. MEROPENEM [Concomitant]
     Active Substance: MEROPENEM
     Dosage: 1 G, DAILY
     Route: 042
     Dates: start: 20250731, end: 20250731
  20. LINEZOLID [Concomitant]
     Active Substance: LINEZOLID
     Indication: Acinetobacter infection
     Dosage: 600 MG, BID
     Route: 042
     Dates: start: 20250714, end: 20250720
  21. LINEZOLID [Concomitant]
     Active Substance: LINEZOLID
     Indication: Pyrexia
     Dosage: 600 MG, BID
     Route: 042
     Dates: start: 20250727, end: 20250730
  22. LINEZOLID [Concomitant]
     Active Substance: LINEZOLID
     Dosage: 600 MG, DAILY
     Route: 042
     Dates: start: 20250731, end: 20250731
  23. ALLOPURINOL [Concomitant]
     Active Substance: ALLOPURINOL
     Indication: Hyperuricaemia
     Dosage: 300 MG, DAILY
     Route: 048
     Dates: start: 20250712
  24. FILGRASTIM [Concomitant]
     Active Substance: FILGRASTIM
     Indication: Leukopenia
     Dosage: 30 MU ONCE
     Route: 058
     Dates: start: 20250719, end: 20250719
  25. FILGRASTIM [Concomitant]
     Active Substance: FILGRASTIM
     Dosage: 30 MU ONCE
     Route: 058
     Dates: start: 20250726, end: 20250726
  26. KAYEXALATE [Concomitant]
     Active Substance: SODIUM POLYSTYRENE SULFONATE
     Indication: Hyperkalaemia
     Dosage: 01 SPOON THREE TIMES A DAY
     Dates: start: 20250901, end: 20250905

REACTIONS (13)
  - Platelet count decreased [Not Recovered/Not Resolved]
  - Febrile neutropenia [Recovered/Resolved]
  - Capillary leak syndrome [Recovering/Resolving]
  - Platelet count decreased [Recovered/Resolved]
  - Gamma-glutamyltransferase increased [Not Recovered/Not Resolved]
  - Lipase increased [Not Recovered/Not Resolved]
  - Alanine aminotransferase increased [Not Recovered/Not Resolved]
  - Blood alkaline phosphatase increased [Not Recovered/Not Resolved]
  - Blood bilirubin increased [Not Recovered/Not Resolved]
  - Blood creatinine increased [Recovered/Resolved]
  - Blood creatinine increased [Recovering/Resolving]
  - Weight increased [Not Recovered/Not Resolved]
  - Platelet count decreased [Not Recovered/Not Resolved]

NARRATIVE: CASE EVENT DATE: 20250710
